FAERS Safety Report 15887707 (Version 2)
Quarter: 2019Q1

REPORT INFORMATION
  Report Type: Report from Study
  Country: US (occurrence: US)
  Receive Date: 20190130
  Receipt Date: 20190207
  Transmission Date: 20190417
  Serious: Yes (Other)
  Sender: FDA-Public Use
  Company Number: US-AMGEN-USASL2019013560

PATIENT
  Sex: Female

DRUGS (1)
  1. AIMOVIG [Suspect]
     Active Substance: ERENUMAB-AOOE
     Indication: PRODUCT USED FOR UNKNOWN INDICATION
     Dosage: UNK
     Route: 065
     Dates: start: 201810

REACTIONS (4)
  - Arthritis infective [Unknown]
  - Heart rate decreased [Unknown]
  - Sinusitis [Unknown]
  - Paranasal sinus haemorrhage [Recovered/Resolved]

NARRATIVE: CASE EVENT DATE: 201812
